FAERS Safety Report 8314258-X (Version None)
Quarter: 2012Q1

REPORT INFORMATION
  Report Type: 
  Country: None (occurrence: None)
  Receive Date: 20120315
  Receipt Date: 20110524
  Transmission Date: 20120608
  Serious: Yes (Other)
  Sender: FDA-Public Use
  Company Number: PHHY2011US25368

PATIENT
  Age: 28 Year
  Sex: Female

DRUGS (2)
  1. GILENYA [Suspect]
     Dosage: 0.5 MG, QD, ORAL
     Route: 048
     Dates: start: 20110202
  2. ZOLOFT [Concomitant]

REACTIONS (4)
  - MALAISE [None]
  - BRONCHITIS [None]
  - PRODUCTIVE COUGH [None]
  - PULMONARY CONGESTION [None]
